FAERS Safety Report 20438458 (Version 1)
Quarter: 2022Q1

REPORT INFORMATION
  Report Type: Report from Study
  Country: KR (occurrence: None)
  Receive Date: 20220207
  Receipt Date: 20220207
  Transmission Date: 20220423
  Serious: Yes (Death)
  Sender: FDA-Public Use
  Company Number: 2022A058366

PATIENT
  Age: 23491 Day
  Sex: Male
  Weight: 76.1 kg

DRUGS (10)
  1. DURVALUMAB [Suspect]
     Active Substance: DURVALUMAB
     Indication: Small cell lung cancer
     Route: 042
     Dates: start: 20211231, end: 20211231
  2. CERALASERTIB [Suspect]
     Active Substance: CERALASERTIB
     Indication: Small cell lung cancer
     Route: 048
     Dates: start: 20220114, end: 20220126
  3. TAMSULOSIN HYDROCHLORIDE [Concomitant]
     Active Substance: TAMSULOSIN HYDROCHLORIDE
     Indication: Benign prostatic hyperplasia
     Route: 048
     Dates: start: 2016
  4. FINASTERIDE [Concomitant]
     Active Substance: FINASTERIDE
     Indication: Benign prostatic hyperplasia
     Route: 048
     Dates: start: 2016
  5. URSODIOL [Concomitant]
     Active Substance: URSODIOL
     Indication: Prophylaxis against transplant rejection
     Route: 048
     Dates: start: 2014
  6. DEXLANSOPRAZOLE [Concomitant]
     Active Substance: DEXLANSOPRAZOLE
     Indication: Gastrointestinal disorder prophylaxis
     Route: 048
     Dates: start: 2015
  7. METHIMAZOLE [Concomitant]
     Active Substance: METHIMAZOLE
     Indication: Hyperthyroidism
     Route: 048
     Dates: start: 2019
  8. FENOFIBRIC ACID [Concomitant]
     Active Substance: FENOFIBRIC ACID
     Indication: Hyperlipidaemia
     Route: 048
     Dates: start: 2015
  9. SARPOGRELATE HCL [Concomitant]
     Indication: Hyperlipidaemia
     Route: 048
     Dates: start: 2015
  10. OMEGA-3-ACID ETHYLESTERS 90 [Concomitant]
     Route: 048
     Dates: start: 2015

REACTIONS (2)
  - Platelet count decreased [Fatal]
  - Cardiac arrest [Fatal]

NARRATIVE: CASE EVENT DATE: 20220127
